FAERS Safety Report 14731666 (Version 1)
Quarter: 2018Q2

REPORT INFORMATION
  Report Type: Spontaneous
  Country: US (occurrence: US)
  Receive Date: 20180407
  Receipt Date: 20180407
  Transmission Date: 20180711
  Serious: Yes (Other)
  Sender: FDA-Public Use
  Company Number: US-TEVA-2018-US-878119

PATIENT
  Sex: Female

DRUGS (1)
  1. NORTRIPTYLINE [Suspect]
     Active Substance: NORTRIPTYLINE
     Route: 065

REACTIONS (5)
  - Vomiting [Unknown]
  - Feeling hot [Unknown]
  - Nasopharyngitis [Unknown]
  - Walking aid user [Unknown]
  - Balance disorder [Unknown]
